FAERS Safety Report 5723870-3 (Version None)
Quarter: 2008Q2

REPORT INFORMATION
  Report Type: 
  Country: None (occurrence: None)
  Receive Date: 20080429
  Receipt Date: 20080429
  Transmission Date: 20081010
  Serious: Yes (Other)
  Sender: FDA-Public Use
  Company Number: None

PATIENT
  Age: 45 Year
  Sex: Female

DRUGS (1)
  1. XYLOCAINE W/ EPINEPHRENE [Suspect]
     Indication: MUSCLE MASS
     Dosage: ONE TIME ID
     Route: 023
     Dates: start: 20080415, end: 20080415

REACTIONS (3)
  - BLISTER [None]
  - PROCEDURAL COMPLICATION [None]
  - SKIN EXFOLIATION [None]
